FAERS Safety Report 9690729 (Version 1)
Quarter: 2013Q4

REPORT INFORMATION
  Report Type: Spontaneous
  Country: US (occurrence: US)
  Receive Date: 20131115
  Receipt Date: 20131115
  Transmission Date: 20140711
  Serious: No
  Sender: FDA-Public Use
  Company Number: US-BAYER-2013-139772

PATIENT
  Age: 18 Year
  Sex: Male
  Weight: 61.22 kg

DRUGS (1)
  1. ALEVE TABLET [Suspect]
     Indication: BACK PAIN
     Dosage: 2 DF, PRN
     Route: 048

REACTIONS (1)
  - Drug ineffective [None]
